FAERS Safety Report 9947914 (Version 1)
Quarter: 2014Q1

REPORT INFORMATION
  Report Type: Report from Study
  Country: US (occurrence: US)
  Receive Date: 20140303
  Receipt Date: 20140303
  Transmission Date: 20141002
  Serious: No
  Sender: FDA-Public Use
  Company Number: US-ABBVIE-13P-163-1059033-00

PATIENT
  Age: 62 Year
  Sex: Female

DRUGS (5)
  1. HUMIRA [Suspect]
     Indication: PSORIASIS
     Dates: start: 20120804
  2. DIOVAN [Concomitant]
     Indication: HYPERTENSION
     Dosage: 320 MG DAILY
     Route: 048
  3. MULTIVITAMIN [Concomitant]
     Indication: VITAMIN SUPPLEMENTATION
  4. GARLIC [Concomitant]
     Indication: NUTRITIONAL SUPPLEMENTATION
  5. CALCIUM [Concomitant]
     Indication: VITAMIN SUPPLEMENTATION

REACTIONS (2)
  - Blood cholesterol increased [Unknown]
  - Hypertension [Unknown]
